FAERS Safety Report 20885257 (Version 1)
Quarter: 2022Q2

REPORT INFORMATION
  Report Type: Spontaneous
  Country: US (occurrence: None)
  Receive Date: 20220527
  Receipt Date: 20220527
  Transmission Date: 20220721
  Serious: No
  Sender: FDA-Public Use
  Company Number: None

PATIENT
  Age: 47 Year
  Sex: Female
  Weight: 81.65 kg

DRUGS (14)
  1. PAXLOVID [Suspect]
     Active Substance: NIRMATRELVIR\RITONAVIR
     Dates: start: 20220520, end: 20220520
  2. ALPHA LIPOIC ACID [Concomitant]
     Active Substance: .ALPHA.-LIPOIC ACID
  3. AZITHROMYCIN [Concomitant]
  4. EZETIMIBE [Concomitant]
     Active Substance: EZETIMIBE
  5. LATANOPROST [Concomitant]
     Active Substance: LATANOPROST
  6. LORATADINE [Concomitant]
     Active Substance: LORATADINE
  7. LORAZEPAM [Concomitant]
     Active Substance: LORAZEPAM
  8. VITAMINS [Concomitant]
     Active Substance: VITAMINS
  9. ALBUTEROL SULFATE [Concomitant]
     Active Substance: ALBUTEROL SULFATE
  10. ROBITUSSIN DM [Concomitant]
     Active Substance: DEXTROMETHORPHAN HYDROBROMIDE\GUAIFENESIN
  11. ROSUVASTATIN [Concomitant]
     Active Substance: ROSUVASTATIN
  12. SYNTHROID [Concomitant]
     Active Substance: LEVOTHYROXINE SODIUM
  13. TIMOLOL [Concomitant]
     Active Substance: TIMOLOL
  14. VITAMIN D3 [Concomitant]
     Active Substance: CHOLECALCIFEROL

REACTIONS (4)
  - Pyrexia [None]
  - Condition aggravated [None]
  - Seizure [None]
  - Feeling abnormal [None]

NARRATIVE: CASE EVENT DATE: 20220520
